FAERS Safety Report 7623195-5 (Version None)
Quarter: 2011Q3

REPORT INFORMATION
  Report Type: 
  Country: None (occurrence: None)
  Receive Date: 20110720
  Receipt Date: 20110715
  Transmission Date: 20111222
  Serious: Yes (Death, Other)
  Sender: FDA-Public Use
  Company Number: PHHY2011BR64272

PATIENT
  Sex: Male
  Weight: 62 kg

DRUGS (4)
  1. ENALAPRIL MALEATE [Concomitant]
     Dosage: 1 DF, TID
     Route: 048
  2. FORMOTEROL FUMARATE [Suspect]
     Dosage: UNK
  3. AMIODARONE HCL [Concomitant]
     Indication: AMERICAN TRYPANOSOMIASIS
     Dosage: 1 DF, QD
     Route: 048
  4. HYDROCHLOROTHIAZIDE [Concomitant]
     Indication: SWELLING
     Dosage: 1 DF, BID
     Route: 048

REACTIONS (3)
  - AMERICAN TRYPANOSOMIASIS [None]
  - EMPHYSEMA [None]
  - CARDIAC DISORDER [None]
